FAERS Safety Report 9637705 (Version 1)
Quarter: 2013Q4

REPORT INFORMATION
  Report Type: Spontaneous
  Country: US (occurrence: US)
  Receive Date: 20131022
  Receipt Date: 20131022
  Transmission Date: 20140711
  Serious: Yes (Hospitalization)
  Sender: FDA-Public Use
  Company Number: US-NOVOPROD-389919

PATIENT
  Age: 68 Year
  Sex: Female
  Weight: 95.24 kg

DRUGS (6)
  1. VICTOZA [Suspect]
     Indication: TYPE 2 DIABETES MELLITUS
     Dosage: 1.2 MG, QD
     Route: 058
     Dates: start: 20130506
  2. DETROL LA [Concomitant]
     Indication: HYPERTONIC BLADDER
     Dosage: UNK
     Route: 048
  3. WELLBUTRIN [Concomitant]
     Indication: MOOD SWINGS
     Dosage: UNK
     Route: 048
  4. OMEPRAZOLE [Concomitant]
     Indication: PEPTIC ULCER
     Dosage: 40 MG, QD
     Route: 048
  5. CRESTOR [Concomitant]
     Indication: BLOOD CHOLESTEROL INCREASED
     Dosage: 10 MG, QD
     Route: 048
  6. NEURONTIN [Concomitant]
     Indication: COMPLEX REGIONAL PAIN SYNDROME
     Dosage: 600 MG, BID
     Route: 048

REACTIONS (1)
  - Hyperglycaemic unconsciousness [Recovered/Resolved]
